FAERS Safety Report 11523991 (Version 1)
Quarter: 2015Q3

REPORT INFORMATION
  Report Type: Spontaneous
  Country: US (occurrence: US)
  Receive Date: 20150903
  Receipt Date: 20150903
  Transmission Date: 20151125
  Serious: Yes (Hospitalization, Other)
  Sender: FDA-Public Use
  Company Number: US-ELI_LILLY_AND_COMPANY-US201210002234

PATIENT
  Age: 77 Year
  Sex: Female
  Weight: 55.78 kg

DRUGS (7)
  1. CYMBALTA [Suspect]
     Active Substance: DULOXETINE HYDROCHLORIDE
     Dosage: 60 MG, UNK
     Route: 048
     Dates: end: 20120929
  2. LORAZEPAM. [Concomitant]
     Active Substance: LORAZEPAM
     Dosage: 1 MG, UNK
  3. AMIODARONE [Concomitant]
     Active Substance: AMIODARONE
  4. OMEPRAZOL [Concomitant]
     Active Substance: OMEPRAZOLE
     Dosage: 20 MG, UNK
  5. CARAFATE [Concomitant]
     Active Substance: SUCRALFATE
     Dosage: 1 G, UNK
  6. BABY ASPIRIN [Concomitant]
     Active Substance: ASPIRIN
  7. MICARDIS [Concomitant]
     Active Substance: TELMISARTAN

REACTIONS (3)
  - Blood potassium decreased [Recovered/Resolved]
  - Blood chloride decreased [Recovered/Resolved]
  - Blood sodium decreased [Recovered/Resolved]

NARRATIVE: CASE EVENT DATE: 20120929
